FAERS Safety Report 21322191 (Version 1)
Quarter: 2022Q3

REPORT INFORMATION
  Report Type: Spontaneous
  Country: US (occurrence: None)
  Receive Date: 20220909
  Receipt Date: 20220909
  Transmission Date: 20221027
  Serious: No
  Sender: FDA-Public Use
  Company Number: None

PATIENT
  Sex: Male
  Weight: 106.14 kg

DRUGS (9)
  1. PROMACTA [Suspect]
     Active Substance: ELTROMBOPAG OLAMINE
     Indication: Haemolytic anaemia
     Dosage: FREQUENCY : DAILY;?
     Route: 048
     Dates: start: 202207
  2. CREON [Concomitant]
     Active Substance: PANCRELIPASE AMYLASE\PANCRELIPASE LIPASE\PANCRELIPASE PROTEASE
  3. FOLIC ACID [Concomitant]
     Active Substance: FOLIC ACID
  4. HUMALOG [Concomitant]
     Active Substance: INSULIN LISPRO
  5. HUMULIN 70/30 [Concomitant]
     Active Substance: INSULIN HUMAN
  6. NADOLOL [Concomitant]
     Active Substance: NADOLOL
  7. PREDNISONE [Concomitant]
     Active Substance: PREDNISONE
  8. SPIRONOLACTONE [Concomitant]
     Active Substance: SPIRONOLACTONE
  9. TORSEMIDE [Concomitant]
     Active Substance: TORSEMIDE

REACTIONS (1)
  - Hospice care [None]
